FAERS Safety Report 15695555 (Version 1)
Quarter: 2018Q4

REPORT INFORMATION
  Report Type: Other
  Country: JP (occurrence: US)
  Receive Date: 20181206
  Receipt Date: 20181206
  Transmission Date: 20190205
  Serious: Yes (Death)
  Sender: FDA-Public Use
  Company Number: JP-GENUS_LIFESCIENCES-USA-POI0580201800127

PATIENT
  Sex: Male
  Weight: 66.5 kg

DRUGS (2)
  1. ALCOHOL. [Suspect]
     Active Substance: ALCOHOL
     Indication: PRODUCT USED FOR UNKNOWN INDICATION
     Dates: end: 201712
  2. GOPRELTO [Suspect]
     Active Substance: COCAINE HYDROCHLORIDE
     Indication: PRODUCT USED FOR UNKNOWN INDICATION
     Route: 065
     Dates: end: 201712

REACTIONS (5)
  - Drug abuse [Fatal]
  - Subarachnoid haemorrhage [Fatal]
  - Hepatic steatosis [Not Recovered/Not Resolved]
  - Sudden death [Fatal]
  - Blood alcohol increased [Not Recovered/Not Resolved]

NARRATIVE: CASE EVENT DATE: 2017
